FAERS Safety Report 13770269 (Version 1)
Quarter: 2017Q3

REPORT INFORMATION
  Report Type: Spontaneous
  Country: CA (occurrence: CA)
  Receive Date: 20170719
  Receipt Date: 20170719
  Transmission Date: 20171127
  Serious: Yes (Hospitalization, Disabling)
  Sender: FDA-Public Use
  Company Number: CA-PFIZER INC-885319

PATIENT
  Age: 34 Year
  Sex: Male

DRUGS (1)
  1. METHOTREXATE SODIUM. [Suspect]
     Active Substance: METHOTREXATE SODIUM
     Dosage: 10.0MG, 1 EVERY 1 DAY(S)
     Route: 048

REACTIONS (6)
  - Gastric disorder [Not Recovered/Not Resolved]
  - Lipase decreased [Not Recovered/Not Resolved]
  - Mass excision [Not Recovered/Not Resolved]
  - Pancreatitis [Not Recovered/Not Resolved]
  - Cardiac arrest [Not Recovered/Not Resolved]
  - Diarrhoea [Not Recovered/Not Resolved]
